FAERS Safety Report 9111078 (Version 1)
Quarter: 2013Q1

REPORT INFORMATION
  Report Type: Spontaneous
  Country: US (occurrence: US)
  Receive Date: 20130219
  Receipt Date: 20130219
  Transmission Date: 20140127
  Serious: Yes (Other)
  Sender: FDA-Public Use
  Company Number: US-BRISTOL-MYERS SQUIBB COMPANY-16375842

PATIENT
  Age: 39 Year
  Sex: Female

DRUGS (1)
  1. ORENCIA FOR INJ [Suspect]
     Indication: RHEUMATOID ARTHRITIS
     Dosage: NEXT INFUSION IS DUE ON 01FEB2012?PLANNING TO ADMINISTER 3 INF
     Route: 042
     Dates: start: 20120120

REACTIONS (4)
  - Throat tightness [Unknown]
  - Urticaria [Unknown]
  - Pruritus [Unknown]
  - Dysphonia [Unknown]
